FAERS Safety Report 10047071 (Version 2)
Quarter: 2014Q1

REPORT INFORMATION
  Report Type: Spontaneous
  Country: US (occurrence: US)
  Receive Date: 20140331
  Receipt Date: 20140331
  Transmission Date: 20141002
  Serious: No
  Sender: FDA-Public Use
  Company Number: US-MYLANLABS-2013S1005492

PATIENT
  Age: 42 Year
  Sex: Female
  Weight: 41.96 kg

DRUGS (7)
  1. FENTANYL TRANSDERMAL SYSTEM [Suspect]
     Indication: PAIN
     Dosage: CHANGED Q72H
     Route: 062
     Dates: start: 201203
  2. BOTOX [Concomitant]
     Indication: MIGRAINE
     Dosage: INJECTION EVERY 12 WEEKS
  3. WELLBUTRIN [Concomitant]
     Indication: DEPRESSION
     Route: 048
     Dates: start: 2005
  4. VALIUM [Concomitant]
     Indication: ANXIETY
     Route: 048
     Dates: start: 2005
  5. PHENERGAN [Concomitant]
     Indication: NAUSEA
     Route: 048
  6. ZYRTEC [Concomitant]
     Indication: MULTIPLE ALLERGIES
     Route: 048
  7. PERCOCET [Concomitant]
     Indication: BREAKTHROUGH PAIN
     Dosage: TO BE TAKEN PRN, EVERY 6 HOURS.  4 TABLETS DAILY, MAXIMUM.
     Route: 048

REACTIONS (3)
  - Drug effect decreased [Recovered/Resolved]
  - Pain [Recovered/Resolved]
  - Feeling jittery [Recovered/Resolved]
